FAERS Safety Report 12710590 (Version 5)
Quarter: 2016Q4

REPORT INFORMATION
  Report Type: Spontaneous
  Country: AT (occurrence: AT)
  Receive Date: 20160902
  Receipt Date: 20161208
  Transmission Date: 20170207
  Serious: Yes (Death, Hospitalization)
  Sender: FDA-Public Use
  Company Number: AT-ABBVIE-16K-009-1715693-00

PATIENT
  Age: 80 Year
  Sex: Male

DRUGS (2)
  1. DUODOPA [Suspect]
     Active Substance: CARBIDOPA\LEVODOPA
     Indication: PARKINSON^S DISEASE
     Dosage: MD: 6.0 ML; ED: 3.4 ML; CR: 3.9ML/H (DAY TIME); CR: 3.0ML/H (NOCTURNAL)
     Route: 050
     Dates: start: 20141002
  2. DUODOPA [Suspect]
     Active Substance: CARBIDOPA\LEVODOPA
     Dosage: MD: 6.0ML; ED: 3.8 ML; CR (DAYTIME): 3.7ML/H; CR (NOCTURNAL): 2.8ML/H
     Route: 050
     Dates: end: 20161117

REACTIONS (5)
  - Medical device site infection [Unknown]
  - Knee arthroplasty [Unknown]
  - Cardiac failure [Fatal]
  - General physical health deterioration [Unknown]
  - Somnolence [Not Recovered/Not Resolved]

NARRATIVE: CASE EVENT DATE: 201607
